FAERS Safety Report 8906216 (Version 1)
Quarter: 2012Q4

REPORT INFORMATION
  Report Type: Spontaneous
  Country: US (occurrence: None)
  Receive Date: 20121114
  Receipt Date: 20121114
  Transmission Date: 20130627
  Serious: No
  Sender: FDA-Public Use
  Company Number: None

PATIENT
  Age: 51 Year
  Sex: Male
  Weight: 62.6 kg

DRUGS (2)
  1. KENALOG [Suspect]
     Indication: ITCHY SCALP
     Dosage: 2 injections IM
     Route: 030
     Dates: start: 20120615, end: 20120703
  2. KENALOG [Suspect]
     Indication: LOCALISED ITCHING
     Dosage: 2 injections IM
     Route: 030
     Dates: start: 20120615, end: 20120703

REACTIONS (6)
  - Weight decreased [None]
  - Decreased appetite [None]
  - Pharyngeal abscess [None]
  - Tooth extraction [None]
  - Alopecia [None]
  - Madarosis [None]
